FAERS Safety Report 6449418-6 (Version None)
Quarter: 2009Q4

REPORT INFORMATION
  Report Type: 
  Country: None (occurrence: None)
  Receive Date: 20091120
  Receipt Date: 20091106
  Transmission Date: 20100525
  Serious: Yes (Hospitalization)
  Sender: FDA-Public Use
  Company Number: TW-SANOFI-AVENTIS-200921443GDDC

PATIENT
  Age: 70 Year
  Sex: Male
  Weight: 84 kg

DRUGS (3)
  1. DOCETAXEL [Suspect]
     Dosage: DOSE UNIT: 15 MG/M**2
     Route: 042
     Dates: start: 20090803, end: 20090921
  2. ALL OTHER THERAPEUTIC PRODUCTS [Suspect]
     Dosage: DOSE AS USED: 2 GY/DAY
     Dates: start: 20090803, end: 20090921
  3. DICLOFENAC [Concomitant]
     Route: 048
     Dates: start: 20090923, end: 20091007

REACTIONS (2)
  - HYPERGLYCAEMIA [None]
  - MUCOSAL INFLAMMATION [None]
